FAERS Safety Report 5758487-8 (Version None)
Quarter: 2008Q2

REPORT INFORMATION
  Report Type: 
  Country: None (occurrence: None)
  Receive Date: 20080604
  Receipt Date: 20080507
  Transmission Date: 20081010
  Serious: No
  Sender: FDA-Public Use
  Company Number: US-BAYER-200822755NA

PATIENT
  Age: 16 Year
  Sex: Female
  Weight: 54 kg

DRUGS (2)
  1. MAGNEVIST [Suspect]
     Indication: NUCLEAR MAGNETIC RESONANCE IMAGING ABDOMINAL
     Dosage: TOTAL DAILY DOSE: 10 ML
     Route: 042
     Dates: start: 20080507, end: 20080507
  2. ATIVAN [Concomitant]
     Indication: PREMEDICATION
     Dates: start: 20080507, end: 20080507

REACTIONS (1)
  - VOMITING [None]
